FAERS Safety Report 7607683-3 (Version None)
Quarter: 2011Q3

REPORT INFORMATION
  Report Type: 
  Country: None (occurrence: None)
  Receive Date: 20110713
  Receipt Date: 20110512
  Transmission Date: 20111222
  Serious: Yes (Other)
  Sender: FDA-Public Use
  Company Number: PHHY2011JP41006

PATIENT
  Sex: Male

DRUGS (17)
  1. AFINITOR [Suspect]
     Indication: METASTATIC RENAL CELL CARCINOMA
     Dosage: 10 MG, DAILY
     Route: 048
     Dates: start: 20100902, end: 20101109
  2. ZOLPIDEM [Concomitant]
     Dosage: 10 MG, UNK
     Route: 048
     Dates: start: 20091119
  3. HIRUDOID [Concomitant]
     Dosage: UNK
     Route: 062
     Dates: start: 20100519
  4. FELBINAC [Concomitant]
     Dosage: UNK
     Route: 062
     Dates: start: 20091121
  5. NIFLAN [Concomitant]
     Dosage: UNK
     Route: 047
     Dates: start: 20091007
  6. AMLODIPINE [Concomitant]
     Dosage: 5 MG, UNK
     Route: 048
     Dates: start: 20101119
  7. KERATINAMIN [Concomitant]
     Dosage: UNK
     Route: 062
     Dates: start: 20100825
  8. LOXONIN [Concomitant]
     Route: 048
  9. LANSOPRAZOLE [Concomitant]
     Indication: PROPHYLAXIS
     Dosage: 15 MG, UNK
     Route: 048
     Dates: start: 20091016
  10. LEVOTHYROXINE SODIUM [Concomitant]
     Dosage: 25 UG, UNK
     Route: 048
     Dates: start: 20100902
  11. SUNITINIB MALATE [Concomitant]
     Indication: METASTATIC RENAL CELL CARCINOMA
     Dosage: 37.5 MG, UNK
     Route: 048
     Dates: start: 20090813, end: 20100811
  12. JUZENTAIHOTO [Concomitant]
     Dosage: 7.5 MG, UNK
     Route: 048
  13. SIMVASTATIN [Concomitant]
     Dosage: 5 MG, UNK
     Route: 048
  14. DIACORT [Concomitant]
     Dosage: UNK
     Route: 062
     Dates: start: 20100811
  15. LOSARTAN POTASSIUM [Concomitant]
     Dosage: 50 MG, UNK
     Route: 048
  16. DIOVAN [Concomitant]
     Dosage: 40 MG, UNK
     Route: 048
     Dates: start: 20091010
  17. AZUNOL [Concomitant]
     Indication: PROPHYLAXIS
     Dosage: UNK
     Route: 048
     Dates: start: 20100902

REACTIONS (3)
  - GAMMA-GLUTAMYLTRANSFERASE INCREASED [None]
  - NEOPLASM MALIGNANT [None]
  - BLOOD ALKALINE PHOSPHATASE INCREASED [None]
